FAERS Safety Report 5305717-2 (Version None)
Quarter: 2007Q2

REPORT INFORMATION
  Report Type: 
  Country: None (occurrence: None)
  Receive Date: 20070416
  Receipt Date: 20070403
  Transmission Date: 20071010
  Serious: Yes (Hospitalization)
  Sender: FDA-Public Use
  Company Number: TCI2007A01518

PATIENT
  Age: 83 Year
  Sex: Male

DRUGS (13)
  1. ACTOS [Suspect]
     Indication: DIABETES MELLITUS NON-INSULIN-DEPENDENT
     Dosage: SEE IMAGE
     Route: 048
     Dates: start: 20060731, end: 20060910
  2. ACTOS [Suspect]
     Indication: DIABETES MELLITUS NON-INSULIN-DEPENDENT
     Dosage: SEE IMAGE
     Route: 048
     Dates: start: 20060911, end: 20070317
  3. AMARYL [Concomitant]
  4. LASIX [Concomitant]
  5. ALDACTONE [Concomitant]
  6. ALLOPURINOL [Concomitant]
  7. TANATRIL (IMIDAPRIL HYDROCHLORIDE) [Concomitant]
  8. LIVACT (AMINO ACIDS NOS) [Concomitant]
  9. ZOLPIDEM TARTRATE [Concomitant]
  10. STRONG NEO-MINOPHAGEN C (CYSTEINE, AMINOACETIC ACID, GLYCYRRHIZIC ACID [Concomitant]
  11. FAMOTIDINE [Concomitant]
  12. LACTULOSE [Concomitant]
  13. PURSENNID (SENNOSIDE A+B) [Concomitant]

REACTIONS (17)
  - ACQUIRED DIAPHRAGMATIC EVENTRATION [None]
  - ASCITES [None]
  - ATELECTASIS [None]
  - BREATH SOUNDS ABNORMAL [None]
  - CARDIAC ASTHMA [None]
  - CARDIAC FAILURE [None]
  - CONDITION AGGRAVATED [None]
  - DYSPNOEA [None]
  - ELECTROCARDIOGRAM QRS COMPLEX ABNORMAL [None]
  - ELECTROCARDIOGRAM T WAVE AMPLITUDE DECREASED [None]
  - FLUID RETENTION [None]
  - HEPATIC CIRRHOSIS [None]
  - HYPOXIA [None]
  - OEDEMA [None]
  - PERICARDIAL EFFUSION [None]
  - PLEURAL EFFUSION [None]
  - WHEEZING [None]
